FAERS Safety Report 9937669 (Version 1)
Quarter: 2014Q1

REPORT INFORMATION
  Report Type: Spontaneous
  Country: US (occurrence: US)
  Receive Date: 20140303
  Receipt Date: 20140303
  Transmission Date: 20141002
  Serious: No
  Sender: FDA-Public Use
  Company Number: US-BIOGENIDEC-2014BI015510

PATIENT
  Age: 68 Year
  Sex: Male

DRUGS (8)
  1. TECFIDERA [Suspect]
     Indication: MULTIPLE SCLEROSIS
     Route: 048
  2. ALENDRONATE SODIUM [Concomitant]
  3. CITALOPRAM HYDROBROMIDE [Concomitant]
  4. GABAPENTIN [Concomitant]
  5. RAPAFLO [Concomitant]
  6. TIZANIDINE COMFORT PAC [Concomitant]
  7. VITAMIN A [Concomitant]
  8. VITAMIN D [Concomitant]

REACTIONS (1)
  - Gait disturbance [Unknown]
